FAERS Safety Report 18381055 (Version 2)
Quarter: 2020Q4

REPORT INFORMATION
  Report Type: Spontaneous
  Country: FR (occurrence: FR)
  Receive Date: 20201014
  Receipt Date: 20201021
  Transmission Date: 20210114
  Serious: Yes (Other)
  Sender: FDA-Public Use
  Company Number: FR-ASTRAZENECA-2020SF30071

PATIENT
  Age: 36 Year
  Sex: Male
  Weight: 55 kg

DRUGS (13)
  1. ORKAMBI [Suspect]
     Active Substance: IVACAFTOR\LUMACAFTOR
     Indication: CYSTIC FIBROSIS
     Dosage: 200/125MG: 2 CP MORNING AND EVENING
     Route: 048
     Dates: start: 201602
  2. AIROMIR [Suspect]
     Active Substance: ALBUTEROL SULFATE
     Indication: CYSTIC FIBROSIS LUNG
     Dosage: 200 UG/INHAL, 2 INHALATION BEFORE AEROSOLS IF SPORT
     Route: 055
  3. A 313 [Suspect]
     Active Substance: RETINOL
     Indication: CYSTIC FIBROSIS
     Route: 065
  4. VENTOLINE [Suspect]
     Active Substance: ALBUTEROL
     Indication: CYSTIC FIBROSIS LUNG
     Dosage: 1 POD(2.5 MG) PER DAY IN AEROSOL
     Route: 055
  5. FORADIL [Suspect]
     Active Substance: FORMOTEROL FUMARATE
     Indication: CYSTIC FIBROSIS LUNG
     Dosage: 2 CAPSULES IN INHALATION MORNING AND EVENING, DAILY NON AZ
     Route: 055
  6. BETA CAROTENE. [Suspect]
     Active Substance: BETA CAROTENE
     Indication: CYSTIC FIBROSIS
     Route: 048
  7. TOCO [Suspect]
     Active Substance: .ALPHA.-TOCOPHEROL ACETATE, D-
     Indication: CYSTIC FIBROSIS
     Dosage: 3 CAPSULES A DAY WITH MEALS
     Route: 048
  8. INEXIUM [Suspect]
     Active Substance: ESOMEPRAZOLE
     Indication: CYSTIC FIBROSIS GASTROINTESTINAL DISEASE
     Dosage: 2
     Route: 048
  9. CREON [Suspect]
     Active Substance: PANCRELIPASE AMYLASE\PANCRELIPASE LIPASE\PANCRELIPASE PROTEASE
     Indication: CYSTIC FIBROSIS PANCREATIC
     Dosage: 25000U, 10-12 CAPSULES PER DAY DURING MEALS, DAILY
     Route: 048
  10. RHINOCORT [Suspect]
     Active Substance: BUDESONIDE
     Dosage: 1 SPRAY IN EACH NOSTRIL IN THE MORNING
     Route: 045
  11. UVEDOSE [Suspect]
     Active Substance: CHOLECALCIFEROL
     Indication: CYSTIC FIBROSIS
     Route: 048
  12. KESTINLYO [Suspect]
     Active Substance: EBASTINE
     Route: 048
  13. SODIUM CHLORIDE. [Suspect]
     Active Substance: SODIUM CHLORIDE
     Indication: CYSTIC FIBROSIS
     Dosage: 3 TO 6 (500MG) CAPSULES PER DAY
     Route: 048

REACTIONS (1)
  - Oesophageal adenocarcinoma [Not Recovered/Not Resolved]

NARRATIVE: CASE EVENT DATE: 202009
